FAERS Safety Report 4885981-4 (Version None)
Quarter: 2006Q1

REPORT INFORMATION
  Report Type: 
  Country: None (occurrence: None)
  Receive Date: 20060118
  Receipt Date: 20060118
  Transmission Date: 20060701
  Serious: Yes (Hospitalization)
  Sender: FDA-Public Use
  Company Number: None

PATIENT
  Age: 22 Year
  Sex: Female
  Weight: 56 kg

DRUGS (6)
  1. IFOSFAMIDE [Suspect]
     Indication: DRUG TOXICITY
     Dosage: PO
     Route: 048
     Dates: start: 20050818, end: 20050819
  2. METRONIDAZOEL [Concomitant]
  3. FUROSEMIDE [Concomitant]
  4. DICLOFENAC [Concomitant]
  5. GCSF [Concomitant]
  6. SEPTRA [Concomitant]

REACTIONS (7)
  - ASTERIXIS [None]
  - CONFUSIONAL STATE [None]
  - DISORIENTATION [None]
  - HALLUCINATION [None]
  - OLIGURIA [None]
  - RENAL FAILURE ACUTE [None]
  - SOMNOLENCE [None]
